FAERS Safety Report 5443329-0 (Version None)
Quarter: 2007Q3

REPORT INFORMATION
  Report Type: 
  Country: None (occurrence: None)
  Receive Date: 20070905
  Receipt Date: 20070824
  Transmission Date: 20080115
  Serious: Yes (Hospitalization)
  Sender: FDA-Public Use
  Company Number: JP-ASTRAZENECA-2007AP01906

PATIENT
  Age: 28162 Day
  Sex: Female
  Weight: 42.4 kg

DRUGS (4)
  1. IRESSA [Suspect]
     Indication: LUNG NEOPLASM MALIGNANT
     Route: 048
     Dates: start: 20061016, end: 20070326
  2. UFT [Concomitant]
  3. RADIOTHERAPY [Concomitant]
     Dosage: 20 GY
     Dates: start: 20060927, end: 20060927
  4. BIOFERMIN [Concomitant]
     Indication: ENTEROCOLITIS
     Route: 048
     Dates: start: 20061016, end: 20070326

REACTIONS (1)
  - LIVER DISORDER [None]
